FAERS Safety Report 6447324-4 (Version None)
Quarter: 2009Q4

REPORT INFORMATION
  Report Type: 
  Country: None (occurrence: None)
  Receive Date: 20091119
  Receipt Date: 20091116
  Transmission Date: 20100525
  Serious: Yes (Other)
  Sender: FDA-Public Use
  Company Number: CHPA2009US22103

PATIENT
  Age: 66 Year
  Sex: Male
  Weight: 70.295 kg

DRUGS (1)
  1. EXCEDRIN (MIGRAINE) [Suspect]
     Indication: SINUS HEADACHE
     Dosage: UNK, UNK
     Route: 048

REACTIONS (4)
  - ENERGY INCREASED [None]
  - HUNGER [None]
  - HYPERTENSION [None]
  - SLEEP DISORDER [None]
